FAERS Safety Report 10818427 (Version 2)
Quarter: 2015Q2

REPORT INFORMATION
  Report Type: Spontaneous
  Country: US (occurrence: US)
  Receive Date: 20150218
  Receipt Date: 20150511
  Transmission Date: 20150821
  Serious: Yes (Death, Hospitalization, Other)
  Sender: FDA-Public Use
  Company Number: US-PFIZER INC-2015033474

PATIENT
  Age: 66 Year
  Sex: Male

DRUGS (1)
  1. SUTENT [Suspect]
     Active Substance: SUNITINIB MALATE
     Indication: CARCINOID TUMOUR
     Dosage: 37.5 MG, 1X/DAY
     Route: 048
     Dates: start: 20110829, end: 20150202

REACTIONS (7)
  - Death [Fatal]
  - Confusional state [Unknown]
  - Deep vein thrombosis [Unknown]
  - Encephalopathy [Unknown]
  - Product use issue [Unknown]
  - Aphagia [Unknown]
  - Dehydration [Unknown]

NARRATIVE: CASE EVENT DATE: 20150208
